FAERS Safety Report 5215815-X (Version None)
Quarter: 2007Q1

REPORT INFORMATION
  Report Type: 
  Country: None (occurrence: None)
  Receive Date: 20070123
  Receipt Date: 20070117
  Transmission Date: 20070707
  Serious: Yes (Hospitalization)
  Sender: FDA-Public Use
  Company Number: US-BRISTOL-MYERS SQUIBB COMPANY-13580923

PATIENT
  Age: 50 Year
  Sex: Female

DRUGS (5)
  1. ABATACEPT [Suspect]
     Indication: RHEUMATOID ARTHRITIS
     Route: 042
     Dates: start: 20040408
  2. LISINOPRIL [Concomitant]
     Indication: HYPERTENSION
     Route: 048
     Dates: start: 20060201
  3. NITROGLYCERIN [Concomitant]
     Route: 048
     Dates: start: 20060202
  4. ASPIRIN [Concomitant]
     Route: 048
     Dates: start: 20060217
  5. PLAVIX [Concomitant]
     Route: 048
     Dates: start: 20060215

REACTIONS (1)
  - ANGINA PECTORIS [None]
